FAERS Safety Report 18729236 (Version 1)
Quarter: 2021Q1

REPORT INFORMATION
  Report Type: Spontaneous
  Country: US (occurrence: US)
  Receive Date: 20210111
  Receipt Date: 20210111
  Transmission Date: 20210419
  Serious: Yes (Hospitalization, Other)
  Sender: FDA-Public Use
  Company Number: None

PATIENT
  Age: 74 Year
  Sex: Female

DRUGS (1)
  1. DOFETILIDE. [Suspect]
     Active Substance: DOFETILIDE
     Indication: OSTEOPOROSIS
     Route: 048
     Dates: start: 20180213

REACTIONS (1)
  - Erythema [None]

NARRATIVE: CASE EVENT DATE: 20201213
